FAERS Safety Report 6956423-X (Version None)
Quarter: 2010Q3

REPORT INFORMATION
  Report Type: 
  Country: None (occurrence: None)
  Receive Date: 20100830
  Receipt Date: 20100819
  Transmission Date: 20110219
  Serious: Yes (Hospitalization)
  Sender: FDA-Public Use
  Company Number: B0671002A

PATIENT
  Age: 15 Year
  Sex: Female

DRUGS (2)
  1. ATRIANCE [Suspect]
     Dosage: 650MGM2 CYCLIC
     Route: 042
     Dates: start: 20100809, end: 20100813
  2. BACTRIM [Concomitant]
     Route: 065

REACTIONS (5)
  - BLOOD CREATINE PHOSPHOKINASE INCREASED [None]
  - HYPOPHOSPHATAEMIA [None]
  - MUSCLE SPASMS [None]
  - MYALGIA [None]
  - MYOSITIS [None]
